FAERS Safety Report 14757922 (Version 1)
Quarter: 2018Q2

REPORT INFORMATION
  Report Type: Report from Study
  Country: US (occurrence: US)
  Receive Date: 20180413
  Receipt Date: 20180413
  Transmission Date: 20180711
  Serious: No
  Sender: FDA-Public Use
  Company Number: PHEH2018US014305

PATIENT
  Sex: Male
  Weight: 50 kg

DRUGS (1)
  1. ILARIS [Suspect]
     Active Substance: CANAKINUMAB
     Indication: JUVENILE IDIOPATHIC ARTHRITIS
     Dosage: 75 MG, QMO
     Route: 058

REACTIONS (4)
  - Injection site nodule [Unknown]
  - Vascular rupture [Unknown]
  - Injection site extravasation [Unknown]
  - Injection site haemorrhage [Unknown]
